FAERS Safety Report 20878033 (Version 1)
Quarter: 2022Q2

REPORT INFORMATION
  Report Type: Spontaneous
  Country: CN (occurrence: CN)
  Receive Date: 20220526
  Receipt Date: 20220526
  Transmission Date: 20220720
  Serious: Yes (Other)
  Sender: FDA-Public Use
  Company Number: CN-PFIZER INC-202200744110

PATIENT
  Age: 76 Year
  Sex: Female

DRUGS (2)
  1. MEDROL [Suspect]
     Active Substance: METHYLPREDNISOLONE
     Indication: Eczema
     Dosage: 24 MG, 1X/DAY
     Route: 048
     Dates: start: 20220420, end: 20220425
  2. THALIDOMIDE [Suspect]
     Active Substance: THALIDOMIDE
     Indication: Eczema
     Dosage: 50 MG, 2X/DAY
     Route: 048
     Dates: start: 20220414, end: 20220424

REACTIONS (1)
  - Drug-induced liver injury [Not Recovered/Not Resolved]

NARRATIVE: CASE EVENT DATE: 20220424
